FAERS Safety Report 7480952-6 (Version None)
Quarter: 2011Q2

REPORT INFORMATION
  Report Type: 
  Country: None (occurrence: None)
  Receive Date: 20110506
  Receipt Date: 20110420
  Transmission Date: 20111010
  Serious: Yes (Hospitalization, Other)
  Sender: FDA-Public Use
  Company Number: 1000020537

PATIENT
  Age: 47 Year
  Sex: Female

DRUGS (2)
  1. CITALOPRAM HYDROBROMIDE [Suspect]
     Dosage: 25-30 TABLETS (ONCE), ORAL
     Route: 048
     Dates: start: 20110418, end: 20110418
  2. SOLVEX (REBOXETINE MESILATE) [Suspect]
     Dosage: ONCE, ORAL
     Route: 048
     Dates: start: 20110418, end: 20110418

REACTIONS (6)
  - SUICIDE ATTEMPT [None]
  - MYDRIASIS [None]
  - INFREQUENT BOWEL MOVEMENTS [None]
  - INTENTIONAL OVERDOSE [None]
  - ELECTROCARDIOGRAM QT PROLONGED [None]
  - SOMNOLENCE [None]
